FAERS Safety Report 21513125 (Version 2)
Quarter: 2023Q1

REPORT INFORMATION
  Report Type: Spontaneous
  Country: JP (occurrence: JP)
  Receive Date: 20221027
  Receipt Date: 20230202
  Transmission Date: 20230417
  Serious: Yes (Hospitalization, Other)
  Sender: FDA-Public Use
  Company Number: JP-MSD-M2022-44869

PATIENT
  Age: 7 Decade
  Sex: Female

DRUGS (3)
  1. KEYTRUDA [Suspect]
     Active Substance: PEMBROLIZUMAB
     Dosage: 200 MILLIGRAM, Q3W
     Route: 041
  2. ABRAXANE [Suspect]
     Active Substance: PACLITAXEL
     Dosage: UNK
     Route: 041
  3. CARBOPLATIN [Suspect]
     Active Substance: CARBOPLATIN
     Dosage: UNK
     Route: 041

REACTIONS (7)
  - Systemic lupus erythematosus [Recovering/Resolving]
  - Shock [Recovered/Resolved]
  - Bedridden [Unknown]
  - General symptom [Unknown]
  - Diarrhoea [Recovered/Resolved]
  - Oropharyngeal pain [Unknown]
  - Abdominal distension [Unknown]
